FAERS Safety Report 11729732 (Version 3)
Quarter: 2016Q2

REPORT INFORMATION
  Report Type: Spontaneous
  Country: US (occurrence: US)
  Receive Date: 20151112
  Receipt Date: 20160411
  Transmission Date: 20160815
  Serious: No
  Sender: FDA-Public Use
  Company Number: US-PFIZER INC-2015384368

PATIENT
  Age: 35 Year
  Sex: Male
  Weight: 77 kg

DRUGS (3)
  1. ZIPRASIDONE HCL [Suspect]
     Active Substance: ZIPRASIDONE HYDROCHLORIDE
     Indication: SLEEP DISORDER
     Dosage: 60 MG AT NIGHT AND OCCASIONAL 20 MG IN THE MORNING
  2. GEODON [Suspect]
     Active Substance: ZIPRASIDONE HYDROCHLORIDE\ZIPRASIDONE MESYLATE
     Dosage: 60 MG AT NIGHT AND OCCASIONAL 20 MG IN THE MORNING
  3. GEODON [Suspect]
     Active Substance: ZIPRASIDONE HYDROCHLORIDE\ZIPRASIDONE MESYLATE
     Indication: SLEEP DISORDER
     Dosage: 60 MG AT NIGHT AND OCCASIONAL 20 MG IN THE MORNING
     Dates: start: 2009, end: 2014

REACTIONS (9)
  - Rhinorrhoea [Recovered/Resolved]
  - Product substitution issue [Unknown]
  - Drug ineffective [Unknown]
  - Soliloquy [Unknown]
  - Sneezing [Recovered/Resolved]
  - Drug hypersensitivity [Recovered/Resolved]
  - Cough [Recovered/Resolved]
  - Poor quality sleep [Unknown]
  - Disturbance in attention [Unknown]
